FAERS Safety Report 9844934 (Version 1)
Quarter: 2014Q1

REPORT INFORMATION
  Report Type: Spontaneous
  Country: AU (occurrence: None)
  Receive Date: 20140122
  Receipt Date: 20140122
  Transmission Date: 20141002
  Serious: Yes (Death, Other)
  Sender: FDA-Public Use
  Company Number: IMP_06941_2014

PATIENT
  Age: 62 Year
  Sex: 0

DRUGS (1)
  1. CARBIDOPA-LEVODOPA [Suspect]
     Indication: PARKINSON^S DISEASE
     Dosage: (DF [HIGH DOSE, CONTROLLED RELEASE, 1700 MG DAILY LEVODOPA DOSE AT DIAGNOSIS OF PN] ORAL)

REACTIONS (3)
  - Peripheral sensorimotor neuropathy [None]
  - Ataxia [None]
  - Nerve degeneration [None]
